FAERS Safety Report 4265988-0 (Version None)
Quarter: 2004Q1

REPORT INFORMATION
  Report Type: 
  Country: None (occurrence: None)
  Receive Date: 20040106
  Receipt Date: 20031219
  Transmission Date: 20041129
  Serious: Yes (Hospitalization)
  Sender: FDA-Public Use
  Company Number: DSA_23765_2003

PATIENT
  Age: 39 Year
  Sex: Male

DRUGS (2)
  1. LORAZEPAM [Suspect]
     Dosage: 67 MG ONCE PO
     Route: 048
     Dates: start: 20031217, end: 20031217
  2. XIMOVAN [Suspect]
     Dosage: 60 MG ONCE PO
     Route: 048
     Dates: start: 20031217, end: 20031217

REACTIONS (3)
  - ELECTROCARDIOGRAM ST SEGMENT ABNORMAL [None]
  - INTENTIONAL OVERDOSE [None]
  - SOPOR [None]
